FAERS Safety Report 25837899 (Version 1)
Quarter: 2025Q3

REPORT INFORMATION
  Report Type: Spontaneous
  Country: EU (occurrence: EU)
  Receive Date: 20250923
  Receipt Date: 20250923
  Transmission Date: 20251020
  Serious: Yes (Hospitalization)
  Sender: MYLAN
  Company Number: None

PATIENT
  Age: 63 Year
  Sex: Female
  Weight: 49 kg

DRUGS (12)
  1. LANSOPRAZOLE [Suspect]
     Active Substance: LANSOPRAZOLE
     Indication: Gastrooesophageal reflux disease
     Dosage: 30 MILLIGRAM, QD, LC
     Dates: end: 20250714
  2. LANSOPRAZOLE [Suspect]
     Active Substance: LANSOPRAZOLE
     Dosage: 30 MILLIGRAM, QD, LC
     Route: 048
     Dates: end: 20250714
  3. LANSOPRAZOLE [Suspect]
     Active Substance: LANSOPRAZOLE
     Dosage: 30 MILLIGRAM, QD, LC
     Route: 048
     Dates: end: 20250714
  4. LANSOPRAZOLE [Suspect]
     Active Substance: LANSOPRAZOLE
     Dosage: 30 MILLIGRAM, QD, LC
     Dates: end: 20250714
  5. RYBREVANT [Concomitant]
     Active Substance: AMIVANTAMAB-VMJW
     Indication: Lung adenocarcinoma
     Dosage: 1750 MILLIGRAM, Q3W, (1750 MG EVERY 3 WEEKS)
     Dates: start: 20250409, end: 20250702
  6. RYBREVANT [Concomitant]
     Active Substance: AMIVANTAMAB-VMJW
     Dosage: 1750 MILLIGRAM, Q3W, (1750 MG EVERY 3 WEEKS)
     Route: 042
     Dates: start: 20250409, end: 20250702
  7. RYBREVANT [Concomitant]
     Active Substance: AMIVANTAMAB-VMJW
     Dosage: 1750 MILLIGRAM, Q3W, (1750 MG EVERY 3 WEEKS)
     Route: 042
     Dates: start: 20250409, end: 20250702
  8. RYBREVANT [Concomitant]
     Active Substance: AMIVANTAMAB-VMJW
     Dosage: 1750 MILLIGRAM, Q3W, (1750 MG EVERY 3 WEEKS)
     Dates: start: 20250409, end: 20250702
  9. PEMETREXED [Concomitant]
     Active Substance: PEMETREXED
     Indication: Lung adenocarcinoma
     Dosage: 750 MILLIGRAM, Q3W, (750MG EVERY 3 WEEKS)
     Dates: start: 20250409, end: 20250702
  10. PEMETREXED [Concomitant]
     Active Substance: PEMETREXED
     Dosage: 750 MILLIGRAM, Q3W, (750MG EVERY 3 WEEKS)
     Route: 042
     Dates: start: 20250409, end: 20250702
  11. PEMETREXED [Concomitant]
     Active Substance: PEMETREXED
     Dosage: 750 MILLIGRAM, Q3W, (750MG EVERY 3 WEEKS)
     Route: 042
     Dates: start: 20250409, end: 20250702
  12. PEMETREXED [Concomitant]
     Active Substance: PEMETREXED
     Dosage: 750 MILLIGRAM, Q3W, (750MG EVERY 3 WEEKS)
     Dates: start: 20250409, end: 20250702

REACTIONS (3)
  - Status epilepticus [Recovered/Resolved]
  - Hypokalaemia [Recovering/Resolving]
  - Hypocalcaemia [Recovering/Resolving]

NARRATIVE: CASE EVENT DATE: 20250714
